FAERS Safety Report 11693676 (Version 3)
Quarter: 2015Q4

REPORT INFORMATION
  Report Type: Report from Study
  Country: US (occurrence: US)
  Receive Date: 20151103
  Receipt Date: 20151130
  Transmission Date: 20160304
  Serious: Yes (Hospitalization, Other)
  Sender: FDA-Public Use
  Company Number: US-GILEAD-2015-0179921

PATIENT
  Age: 69 Year
  Sex: Female

DRUGS (2)
  1. AMBRISENTAN [Suspect]
     Active Substance: AMBRISENTAN
     Indication: PRODUCT USED FOR UNKNOWN INDICATION
     Dosage: 10 MG, QD
     Route: 065
     Dates: start: 20141215
  2. XARELTO [Concomitant]
     Active Substance: RIVAROXABAN

REACTIONS (5)
  - Toe operation [Unknown]
  - Foot operation [Unknown]
  - Unevaluable event [Unknown]
  - Staphylococcal infection [Unknown]
  - Osteomyelitis [Unknown]
